FAERS Safety Report 4348204-0 (Version None)
Quarter: 2004Q2

REPORT INFORMATION
  Report Type: 
  Country: None (occurrence: None)
  Receive Date: 20040422
  Receipt Date: 20040412
  Transmission Date: 20050107
  Serious: Yes (Hospitalization)
  Sender: FDA-Public Use
  Company Number: HQWYE433012APR04

PATIENT
  Age: 61 Year
  Sex: Female

DRUGS (9)
  1. INDERAL [Suspect]
     Dosage: APPROXIMATELY 300 MG, TOTAL ORAL
     Route: 048
     Dates: start: 20040102, end: 20040102
  2. FLURAZEPAM [Suspect]
     Dosage: APPROXIMATELY 1800 MG, TOTAL
     Dates: start: 20040102, end: 20040102
  3. DETROL [Suspect]
     Dosage: APPROXIMATELY 14 MG, TOTAL
     Dates: start: 20040102, end: 20040102
  4. ENTUMIN (CLOTIAPINE, ) [Suspect]
     Dosage: APPROXIMATELY 4000 MG TOTAL
     Dates: start: 20040102, end: 20040102
  5. FLUVOXAMINE MALEATE [Suspect]
     Indication: BIPOLAR DISORDER
     Dosage: APPROXIMATELY 800 MG, TOTAL
     Dates: start: 20040102, end: 20040102
  6. PONSTEL [Suspect]
     Dosage: APPROXIMATELY 18000 MG TOTAL
     Dates: start: 20040102, end: 20040102
  7. LITHIUM CARBONATE [Suspect]
     Dosage: APPROXIMATELY 4000 MG, TOTAL
     Dates: start: 20040102, end: 20040102
  8. TRAMADOL HCL [Suspect]
     Dosage: APPROXIMATELY 4500 MG, TOTAL
     Dates: start: 20040102, end: 20040102
  9. CLORAZEPATE DIPOTASSIUM [Suspect]
     Dosage: APPROXIMATELY 250 MG, TOTAL
     Dates: start: 20040102, end: 20040102

REACTIONS (17)
  - ANAEMIA [None]
  - BRADYCARDIA [None]
  - COMA [None]
  - DIARRHOEA [None]
  - GASTRIC ULCER [None]
  - GASTRITIS HAEMORRHAGIC [None]
  - HAEMATEMESIS [None]
  - HAEMODIALYSIS [None]
  - HYPOTENSION [None]
  - HYPOXIA [None]
  - METABOLIC ACIDOSIS [None]
  - MIOSIS [None]
  - MULTIPLE DRUG OVERDOSE [None]
  - PITTING OEDEMA [None]
  - RENAL FAILURE ACUTE [None]
  - SEROTONIN SYNDROME [None]
  - THROMBOCYTOPENIA [None]
